FAERS Safety Report 6253431-1 (Version None)
Quarter: 2009Q3

REPORT INFORMATION
  Report Type: 
  Country: None (occurrence: None)
  Receive Date: 20090701
  Receipt Date: 20090622
  Transmission Date: 20100115
  Serious: Yes (Other)
  Sender: FDA-Public Use
  Company Number: US-SANOFI-SYNTHELABO-A03200901152

PATIENT
  Age: 28 Year
  Sex: Female

DRUGS (1)
  1. AMBIEN [Suspect]
     Indication: DRUG USE FOR UNKNOWN INDICATION
     Dosage: UNK
     Route: 048

REACTIONS (4)
  - HOMICIDE [None]
  - IMPAIRED DRIVING ABILITY [None]
  - PRESCRIPTION FORM TAMPERING [None]
  - ROAD TRAFFIC ACCIDENT [None]
